FAERS Safety Report 8983365 (Version 1)
Quarter: 2012Q4

REPORT INFORMATION
  Report Type: 
  Country: US (occurrence: US)
  Receive Date: 20121221
  Receipt Date: 20121221
  Transmission Date: 20130627
  Serious: Yes (Other)
  Sender: FDA-Public Use
  Company Number: US-JHP PHARMACEUTICALS, LLC-JHP201200582

PATIENT
  Sex: Male

DRUGS (1)
  1. CORTISPORIN TC OTIC [Suspect]
     Indication: EAR INFECTION
     Dosage: UNK
     Route: 001
     Dates: start: 201212, end: 201212

REACTIONS (3)
  - Auricular swelling [Recovering/Resolving]
  - Urticaria [Recovering/Resolving]
  - Dizziness [Recovering/Resolving]
